FAERS Safety Report 6277576-5 (Version None)
Quarter: 2009Q3

REPORT INFORMATION
  Report Type: 
  Country: None (occurrence: None)
  Receive Date: 20090717
  Receipt Date: 20090717
  Transmission Date: 20100115
  Serious: No
  Sender: FDA-Public Use
  Company Number: None

PATIENT
  Age: 33 Year
  Sex: Female
  Weight: 55.3388 kg

DRUGS (2)
  1. KENALOG-40 [Suspect]
     Indication: DERMATITIS
     Dosage: 40 MG 1 TIME INJECTION IM
     Route: 030
     Dates: start: 20090428, end: 20090428
  2. KENALOG-40 [Suspect]
     Indication: SEBORRHOEIC DERMATITIS
     Dosage: 40 MG 1 TIME INJECTION IM
     Route: 030
     Dates: start: 20090428, end: 20090428

REACTIONS (4)
  - CONTUSION [None]
  - PAIN [None]
  - SCAR [None]
  - SKIN DISORDER [None]
